FAERS Safety Report 5008441-9 (Version None)
Quarter: 2006Q2

REPORT INFORMATION
  Report Type: 
  Country: None (occurrence: None)
  Receive Date: 20060518
  Receipt Date: 20060510
  Transmission Date: 20061013
  Serious: Yes (Other)
  Sender: FDA-Public Use
  Company Number: DE200604000615

PATIENT
  Age: 15 Year
  Sex: Female

DRUGS (1)
  1. STRATTERA [Suspect]
     Dosage: ORAL
     Route: 048

REACTIONS (1)
  - EPILEPSY [None]
